FAERS Safety Report 9514909 (Version 2)
Quarter: 2014Q1

REPORT INFORMATION
  Report Type: Spontaneous
  Country: US (occurrence: None)
  Receive Date: 20130305
  Receipt Date: 20140306
  Transmission Date: 20141002
  Serious: Yes (Other)
  Sender: FDA-Public Use
  Company Number: 163-21880-12112363

PATIENT
  Age: 64 Year
  Sex: Male
  Weight: 98.43 kg

DRUGS (3)
  1. REVLIMID (LENALIDOMIDE) (10 MILLIGRAM, CAPSULES) [Suspect]
     Indication: 5Q MINUS SYNDROME
     Route: 048
     Dates: start: 200904
  2. EXJADE (DEFERASIROX) (TABLETS) [Concomitant]
  3. WARFARIN (WARFARIN) (UNKNOWN) [Concomitant]

REACTIONS (4)
  - Full blood count decreased [None]
  - Diarrhoea [None]
  - Abdominal discomfort [None]
  - Dry skin [None]
